FAERS Safety Report 4306274-X (Version None)
Quarter: 2004Q1

REPORT INFORMATION
  Report Type: 
  Country: None (occurrence: None)
  Receive Date: 20040225
  Receipt Date: 20030417
  Transmission Date: 20041129
  Serious: No
  Sender: FDA-Public Use
  Company Number: US-BRISTOL-MYERS SQUIBB COMPANY-12248217

PATIENT

DRUGS (1)
  1. EXCEDRIN (MIGRAINE) [Suspect]
     Indication: SINUS HEADACHE

REACTIONS (2)
  - GASTROINTESTINAL DISORDER [None]
  - GASTROINTESTINAL PAIN [None]
